FAERS Safety Report 17323006 (Version 1)
Quarter: 2020Q1

REPORT INFORMATION
  Report Type: Spontaneous
  Country: US (occurrence: US)
  Receive Date: 20200124
  Receipt Date: 20200124
  Transmission Date: 20200409
  Serious: Yes (Other)
  Sender: FDA-Public Use
  Company Number: None

PATIENT
  Age: 72 Year
  Sex: Male
  Weight: 70 kg

DRUGS (1)
  1. TISAGENLECLEUCEL. [Suspect]
     Active Substance: TISAGENLECLEUCEL
     Indication: DIFFUSE LARGE B-CELL LYMPHOMA
     Dosage: ?          OTHER FREQUENCY:ONCE;?
     Route: 042
     Dates: start: 20191119, end: 20191119

REACTIONS (9)
  - Febrile neutropenia [None]
  - Thrombocytopenia [None]
  - Cough [None]
  - Nasal congestion [None]
  - Cytopenia [None]
  - Rhinovirus infection [None]
  - Disease progression [None]
  - Cytokine release syndrome [None]
  - Petechiae [None]

NARRATIVE: CASE EVENT DATE: 20191122
